FAERS Safety Report 5538367-3 (Version None)
Quarter: 2007Q4

REPORT INFORMATION
  Report Type: 
  Country: None (occurrence: None)
  Receive Date: 20071205
  Receipt Date: 20071129
  Transmission Date: 20080405
  Serious: Yes (Death, Life-Threatening, Hospitalization)
  Sender: FDA-Public Use
  Company Number: CLOF-10695

PATIENT
  Age: 21 Year
  Sex: Female
  Weight: 68.1 kg

DRUGS (41)
  1. CLOFARABINE. MFR: GENZYME [Suspect]
     Indication: ACUTE LYMPHOCYTIC LEUKAEMIA
     Dosage: 40 MG/M2 QD X 3;IV
     Route: 042
     Dates: start: 20070927, end: 20070929
  2. CYCLOPHOSPHAMIDE [Suspect]
     Indication: ACUTE LYMPHOCYTIC LEUKAEMIA
     Dosage: 300 MG/M2; ONCE; IV
     Route: 042
     Dates: start: 20070926, end: 20070926
  3. CYCLOPHOSPHAMIDE [Suspect]
     Indication: ACUTE LYMPHOCYTIC LEUKAEMIA
     Dosage: 300 MG/M2 BID; IV
     Route: 042
     Dates: start: 20070928, end: 20070929
  4. ZOFRAN [Concomitant]
  5. ALLOPURINOL [Concomitant]
  6. CEFEPIME [Concomitant]
  7. HALOPERIDOL [Concomitant]
  8. HYDRALAZINE [Concomitant]
  9. HYDROMORPHONE HCL [Concomitant]
  10. INSULIN [Concomitant]
  11. ITRACONAZOLE [Concomitant]
  12. ATIVAN [Concomitant]
  13. MEDROXYPROGESTERONE [Concomitant]
  14. METHYLPREDNISOLONE [Concomitant]
  15. METOPROLOL [Concomitant]
  16. PANTOPRAZOLE SODIUM [Concomitant]
  17. SEVELAMER [Concomitant]
  18. TEMAZEPAM [Concomitant]
  19. HYDROXYZINE [Concomitant]
  20. LEVAQUIN [Concomitant]
  21. NORINYL [Concomitant]
  22. ANTIPROTOZOAL [Concomitant]
  23. VALTREX [Concomitant]
  24. DIPHENHYDRAMINE HCL [Concomitant]
  25. HYDROCORTISONE [Concomitant]
  26. MAGNESIUM SULFATE [Concomitant]
  27. POTASSIUM CHLORIDE [Concomitant]
  28. SODIUM PHOSPHATES [Concomitant]
  29. MIDAZOLAM HCL [Concomitant]
  30. FENTANYL CITRATE [Concomitant]
  31. PANTOPRAZOLE SODIUM [Concomitant]
  32. VORICONAZOLE [Concomitant]
  33. LEVALBUTEROL HCL [Concomitant]
  34. VANCOMYCIN [Concomitant]
  35. LINEZOLID [Concomitant]
  36. ACYLCLOVIR SODIM [Concomitant]
  37. SODIUM BICARBONATE [Concomitant]
  38. LEVOFLOXACIN [Concomitant]
  39. FLUCONAZOLE [Concomitant]
  40. ONDANSTERON [Concomitant]
  41. SPECIALITY VITAMIN PRODUCTS [Concomitant]

REACTIONS (17)
  - ASPERGILLOSIS [None]
  - BLOOD AMYLASE ABNORMAL [None]
  - BRADYCARDIA [None]
  - DIABETIC KETOACIDOSIS [None]
  - GLUCOSE TOLERANCE IMPAIRED [None]
  - HEADACHE [None]
  - HYPERBILIRUBINAEMIA [None]
  - HYPOTENSION [None]
  - LIPASE ABNORMAL [None]
  - MULTI-ORGAN FAILURE [None]
  - NEUTROPENIC INFECTION [None]
  - PANCREATITIS [None]
  - SEPSIS [None]
  - SINUSITIS [None]
  - STENOTROPHOMONAS INFECTION [None]
  - TACHYCARDIA [None]
  - UNRESPONSIVE TO STIMULI [None]
